FAERS Safety Report 17697543 (Version 1)
Quarter: 2020Q2

REPORT INFORMATION
  Report Type: Spontaneous
  Country: US (occurrence: US)
  Receive Date: 20200422
  Receipt Date: 20200422
  Transmission Date: 20200714
  Serious: Yes (Hospitalization)
  Sender: FDA-Public Use
  Company Number: None

PATIENT
  Age: 50 Year
  Sex: Male

DRUGS (4)
  1. TALTZ [Suspect]
     Active Substance: IXEKIZUMAB
     Indication: PSORIASIS
     Dosage: ?          OTHER FREQUENCY:EVERY 4 WEEKS;?
     Route: 058
     Dates: start: 20180214
  2. OXYCODONE/APAP TAB 5-325 MG [Concomitant]
  3. CEPHALEXIN CAP 500 MG [Concomitant]
  4. HUMIRA INJ 40 MG/ 0.8 [Concomitant]

REACTIONS (2)
  - Intestinal resection [None]
  - Colectomy [None]

NARRATIVE: CASE EVENT DATE: 20200403
